FAERS Safety Report 10879126 (Version 1)
Quarter: 2015Q1

REPORT INFORMATION
  Report Type: Spontaneous
  Country: US (occurrence: None)
  Receive Date: 20150224
  Receipt Date: 20150224
  Transmission Date: 20150721
  Serious: No
  Sender: FDA-Public Use
  Company Number: None

PATIENT
  Age: 79 Year
  Sex: Female

DRUGS (5)
  1. WARFARIN [Concomitant]
     Active Substance: WARFARIN
  2. INSULIN [Concomitant]
     Active Substance: INSULIN NOS
  3. WARFARIN [Suspect]
     Active Substance: WARFARIN
  4. INRATIO MONITOR SN 122831922 [Concomitant]
  5. UNSPECIFIED ANTIBIOTIC [Concomitant]
     Active Substance: UNSPECIFIED INGREDIENT

REACTIONS (11)
  - Aphagia [None]
  - International normalised ratio increased [None]
  - Treatment noncompliance [None]
  - Terminal state [None]
  - Incorrect dose administered [None]
  - Respiratory failure [None]
  - Medication monitoring error [None]
  - Hospice care [None]
  - International normalised ratio decreased [None]
  - Drug dose omission [None]
  - Device failure [None]

NARRATIVE: CASE EVENT DATE: 20140925
